FAERS Safety Report 7990131-1 (Version None)
Quarter: 2011Q4

REPORT INFORMATION
  Report Type: 
  Country: None (occurrence: None)
  Receive Date: 20111219
  Receipt Date: 20110419
  Transmission Date: 20120403
  Serious: No
  Sender: FDA-Public Use
  Company Number: US-ASTRAZENECA-2011SE23036

PATIENT
  Age: 709 Month
  Sex: Male
  Weight: 72.6 kg

DRUGS (7)
  1. NIASPAN [Suspect]
  2. COENZYME Q10 [Concomitant]
  3. FISH OIL [Concomitant]
  4. VICODIN [Concomitant]
     Indication: BACK PAIN
  5. CRESTOR [Suspect]
     Route: 048
     Dates: start: 20090301, end: 20090901
  6. MULTI-VITAMIN [Concomitant]
  7. ASPIRIN [Concomitant]

REACTIONS (4)
  - MYALGIA [None]
  - MUSCULAR WEAKNESS [None]
  - FLUSHING [None]
  - NAUSEA [None]
